FAERS Safety Report 6020900-9 (Version None)
Quarter: 2008Q4

REPORT INFORMATION
  Report Type: 
  Country: None (occurrence: None)
  Receive Date: 20081229
  Receipt Date: 20081215
  Transmission Date: 20090506
  Serious: Yes (Death)
  Sender: FDA-Public Use
  Company Number: US-PFIZER INC-2008153736

PATIENT
  Age: 38 Year
  Sex: Female

DRUGS (6)
  1. PREGABALIN [Suspect]
  2. CLONAZEPAM [Suspect]
  3. SERTRALINE HCL [Suspect]
     Dosage: UNK
  4. HYDROCODONE BITARTRATE + ACETAMINOPHEN [Suspect]
  5. QUETIAPINE [Suspect]
  6. CARISOPRODOL [Suspect]

REACTIONS (1)
  - COMPLETED SUICIDE [None]
